FAERS Safety Report 20227101 (Version 1)
Quarter: 2021Q4

REPORT INFORMATION
  Report Type: Report from Study
  Country: US (occurrence: None)
  Receive Date: 20211224
  Receipt Date: 20211224
  Transmission Date: 20220304
  Serious: Yes (Other)
  Sender: FDA-Public Use
  Company Number: US-ROCHE-2633015

PATIENT
  Age: 49 Year
  Sex: Male
  Weight: 106 kg

DRUGS (25)
  1. RANIBIZUMAB [Suspect]
     Active Substance: RANIBIZUMAB
     Indication: Diabetic retinal oedema
     Dosage: INTRAVITREAL RANIBIZUMAB INJECTION (10 MG/ML)?FELLOW EYE TREATMENT?DATE OF MOST RECENT DOSE OF FELLO
     Route: 050
     Dates: start: 20200305
  2. RANIBIZUMAB [Suspect]
     Active Substance: RANIBIZUMAB
  3. RANIBIZUMAB [Suspect]
     Active Substance: RANIBIZUMAB
  4. RANIBIZUMAB [Suspect]
     Active Substance: RANIBIZUMAB
  5. RANIBIZUMAB [Suspect]
     Active Substance: RANIBIZUMAB
  6. RANIBIZUMAB [Suspect]
     Active Substance: RANIBIZUMAB
  7. RANIBIZUMAB [Suspect]
     Active Substance: RANIBIZUMAB
     Dosage: DATE OF MOST RECENT DOSE OF FELLOW EYE RANIBIZUMAB ADMINISTERED PRIOR TO ONSET OF CORNEAL ABRASION:
     Route: 050
     Dates: start: 20200305
  8. RANIBIZUMAB [Suspect]
     Active Substance: RANIBIZUMAB
  9. RANIBIZUMAB [Suspect]
     Active Substance: RANIBIZUMAB
  10. RANIBIZUMAB [Suspect]
     Active Substance: RANIBIZUMAB
  11. RANIBIZUMAB [Suspect]
     Active Substance: RANIBIZUMAB
  12. RANIBIZUMAB [Suspect]
     Active Substance: RANIBIZUMAB
  13. GLIPIZIDE [Concomitant]
     Active Substance: GLIPIZIDE
     Indication: Type 2 diabetes mellitus
     Dates: start: 201904
  14. MONTELUKAST [Concomitant]
     Active Substance: MONTELUKAST SODIUM
     Indication: Perennial allergy
     Dates: start: 201904
  15. PIOGLITAZONE [Concomitant]
     Active Substance: PIOGLITAZONE
     Indication: Type 2 diabetes mellitus
     Dates: start: 201904
  16. METFORMIN HYDROCHLORIDE [Concomitant]
     Active Substance: METFORMIN HYDROCHLORIDE
     Indication: Type 2 diabetes mellitus
     Dates: start: 2006
  17. LISINOPRIL [Concomitant]
     Active Substance: LISINOPRIL
     Indication: Hypertension
     Dates: start: 2006
  18. CETIRIZINE HYDROCHLORIDE [Concomitant]
     Active Substance: CETIRIZINE HYDROCHLORIDE
     Indication: Perennial allergy
     Dates: start: 2010
  19. PRAVASTATIN SODIUM [Concomitant]
     Active Substance: PRAVASTATIN SODIUM
     Indication: Hypercholesterolaemia
     Dates: start: 201904
  20. OMEPRAZOLE [Concomitant]
     Active Substance: OMEPRAZOLE
     Indication: Dyspepsia
     Dates: start: 2010
  21. TYLENOL [Concomitant]
     Active Substance: ACETAMINOPHEN
     Indication: Eye pain
     Route: 048
     Dates: start: 20200625, end: 20200626
  22. IBUPROFEN [Concomitant]
     Active Substance: IBUPROFEN
     Indication: Eye pain
     Dosage: 200 MG/ML PILL
     Route: 048
     Dates: start: 20200626, end: 20200629
  23. ALEVE [Concomitant]
     Active Substance: NAPROXEN SODIUM
     Indication: Eye pain
     Dosage: 200 MG/ML
     Route: 048
     Dates: start: 20200626, end: 20200629
  24. ERYTHROMYCIN [Concomitant]
     Active Substance: ERYTHROMYCIN
     Indication: Eye pain
     Dosage: 5 MG/ML
     Dates: start: 20200626, end: 20200630
  25. TOBRADEX [Concomitant]
     Active Substance: DEXAMETHASONE\TOBRAMYCIN
     Indication: Prophylaxis
     Route: 047
     Dates: start: 20200623, end: 20200701

REACTIONS (1)
  - Corneal abrasion [Recovered/Resolved]

NARRATIVE: CASE EVENT DATE: 20200626
